FAERS Safety Report 7961607-8 (Version None)
Quarter: 2011Q4

REPORT INFORMATION
  Report Type: 
  Country: None (occurrence: None)
  Receive Date: 20111202
  Receipt Date: 20111202
  Transmission Date: 20120403
  Serious: Yes (Other)
  Sender: FDA-Public Use
  Company Number: None

PATIENT
  Sex: Female
  Weight: 54.4316 kg

DRUGS (2)
  1. KEPPRA [Suspect]
  2. LAMICTAL [Suspect]
     Indication: CONVULSION
     Dosage: 400 MG DAILY PO
     Route: 048

REACTIONS (3)
  - RETCHING [None]
  - VOMITING [None]
  - GASTROOESOPHAGEAL REFLUX DISEASE [None]
